FAERS Safety Report 15418765 (Version 2)
Quarter: 2018Q4

REPORT INFORMATION
  Report Type: Spontaneous
  Country: US (occurrence: US)
  Receive Date: 20180924
  Receipt Date: 20181016
  Transmission Date: 20190204
  Serious: Yes (Hospitalization, Other)
  Sender: FDA-Public Use
  Company Number: US-009507513-1809USA007881

PATIENT
  Age: 67 Year
  Sex: Male
  Weight: 63.7 kg

DRUGS (9)
  1. MOTRIN [Concomitant]
     Active Substance: IBUPROFEN
     Indication: PYREXIA
     Dosage: 200 MG, EVERY 8 HOURS, AS NEEDED
     Route: 048
  2. OXYCODONE [Concomitant]
     Active Substance: OXYCODONE
     Indication: CANCER PAIN
     Dosage: 1 TABLET (5 MG TOTAL) BY MOUTH EVERY 4 HOURS
     Route: 048
  3. ZESTRIL [Concomitant]
     Active Substance: LISINOPRIL
     Dosage: 10 MG, DAILY
     Route: 048
  4. ADVIL [Concomitant]
     Active Substance: IBUPROFEN
     Indication: PYREXIA
     Dosage: 200 MG, EVERY 8 HOURS, AS NEEDED
     Route: 048
  5. ALUMINUM HYDROXIDE (+) DIPHENHYDRAMINE HYDROCHLORIDE (+) LIDOCAINE HYD [Concomitant]
     Dosage: 200-25-400-40 MG/30 ML SUSPENSION SWISH ANS SPIT, 10 ML 4 TIMES A DAY AS NEEDED
     Route: 048
  6. PRINIVIL [Concomitant]
     Active Substance: LISINOPRIL
     Dosage: 10 MG, DAILY
     Route: 048
  7. KEYTRUDA [Suspect]
     Active Substance: PEMBROLIZUMAB
     Indication: METASTATIC SQUAMOUS CELL CARCINOMA
     Dosage: 100MG/4ML, 200 MG, EVERY THREE WEEKS
     Route: 042
     Dates: start: 20180828, end: 20180828
  8. MPH MEDICAL ORAMAGIC RX [Concomitant]
     Indication: STOMATITIS
     Dosage: 15 ML 4 TIMES A DAY AS NEEDED
     Route: 048
  9. ASPIRIN. [Concomitant]
     Active Substance: ASPIRIN
     Dosage: 81 MG, DAILY
     Route: 048

REACTIONS (1)
  - Thrombosis [Unknown]

NARRATIVE: CASE EVENT DATE: 20180915
